FAERS Safety Report 23881830 (Version 5)
Quarter: 2025Q4

REPORT INFORMATION
  Report Type: Spontaneous
  Country: IN (occurrence: IN)
  Receive Date: 20240521
  Receipt Date: 20251112
  Transmission Date: 20260118
  Serious: Yes (Death, Hospitalization)
  Sender: PFIZER
  Company Number: IN-PFIZER INC-PV202400065733

PATIENT
  Age: 64 Year
  Sex: Male

DRUGS (2)
  1. LORLATINIB [Suspect]
     Active Substance: LORLATINIB
     Dosage: 100 MG, 1X/DAY
     Route: 048
     Dates: start: 20240514
  2. LORLATINIB [Suspect]
     Active Substance: LORLATINIB
     Dosage: 75 MG, 1X/DAY
     Route: 048

REACTIONS (8)
  - Death [Fatal]
  - Vomiting [Unknown]
  - Gastrointestinal disorder [Unknown]
  - Seizure [Recovering/Resolving]
  - Deep vein thrombosis [Recovering/Resolving]
  - Urinary tract infection [Recovering/Resolving]
  - Dyspnoea [Recovering/Resolving]
  - Illness [Unknown]

NARRATIVE: CASE EVENT DATE: 20240501
